FAERS Safety Report 15995271 (Version 5)
Quarter: 2019Q2

REPORT INFORMATION
  Report Type: Report from Study
  Country: US (occurrence: US)
  Receive Date: 20190222
  Receipt Date: 20190531
  Transmission Date: 20190711
  Serious: Yes (Death, Hospitalization, Other)
  Sender: FDA-Public Use
  Company Number: US-BRISTOL-MYERS SQUIBB COMPANY-BMS-2019-015943

PATIENT
  Age: 54 Year
  Sex: Female
  Weight: 54 kg

DRUGS (2)
  1. NIVOLUMAB [Suspect]
     Active Substance: NIVOLUMAB
     Indication: ANAL SQUAMOUS CELL CARCINOMA
     Dosage: 960 MILLIGRAM
     Route: 042
     Dates: start: 20190131
  2. IPILIMUMAB [Suspect]
     Active Substance: IPILIMUMAB
     Indication: ANAL SQUAMOUS CELL CARCINOMA
     Dosage: 55 MILLIGRAM
     Route: 042
     Dates: start: 20190131

REACTIONS (8)
  - Lung infection [Recovered/Resolved]
  - Radiation injury [Unknown]
  - Dyspnoea [Recovered/Resolved]
  - Seizure [Recovered/Resolved with Sequelae]
  - Pneumonitis [Unknown]
  - Autoimmune disorder [Unknown]
  - Respiratory failure [Fatal]
  - Pleural effusion [Recovered/Resolved with Sequelae]

NARRATIVE: CASE EVENT DATE: 20190207
